FAERS Safety Report 13345034 (Version 1)
Quarter: 2017Q1

REPORT INFORMATION
  Report Type: Spontaneous
  Country: US (occurrence: US)
  Receive Date: 20170317
  Receipt Date: 20170317
  Transmission Date: 20170428
  Serious: No
  Sender: FDA-Public Use
  Company Number: US-PFIZER INC-2017116893

PATIENT
  Age: 53 Year
  Sex: Female

DRUGS (2)
  1. ARMOUR THYROID [Suspect]
     Active Substance: THYROID, PORCINE
     Indication: HYPOTHYROIDISM
  2. LEVOTHYROXINE SODIUM. [Suspect]
     Active Substance: LEVOTHYROXINE SODIUM
     Indication: HYPOTHYROIDISM

REACTIONS (2)
  - Arthralgia [Unknown]
  - Nausea [Unknown]
